FAERS Safety Report 10437959 (Version 2)
Quarter: 2014Q3

REPORT INFORMATION
  Report Type: Spontaneous
  Country: US (occurrence: US)
  Receive Date: 20140908
  Receipt Date: 20140908
  Transmission Date: 20150326
  Serious: Yes (Other)
  Sender: FDA-Public Use
  Company Number: US-ABBVIE-14P-163-1275739-00

PATIENT
  Age: 25 Year
  Sex: Female

DRUGS (3)
  1. PEGASYS [Suspect]
     Active Substance: PEGINTERFERON ALFA-2A
     Indication: PRODUCT USED FOR UNKNOWN INDICATION
     Route: 058
     Dates: start: 20140228, end: 20140523
  2. RIBASPHERE RIBAPAK [Suspect]
     Active Substance: RIBAVIRIN
     Indication: PRODUCT USED FOR UNKNOWN INDICATION
     Dosage: 600 MG AM, 400 MG PM
     Route: 048
     Dates: start: 20140228, end: 20140523
  3. SOVALDI [Suspect]
     Active Substance: SOFOSBUVIR
     Indication: HEPATITIS C
     Dates: start: 20140228, end: 20140523

REACTIONS (1)
  - Abortion spontaneous [Unknown]

NARRATIVE: CASE EVENT DATE: 20140824
